FAERS Safety Report 6801566-4 (Version None)
Quarter: 2010Q2

REPORT INFORMATION
  Report Type: 
  Country: None (occurrence: None)
  Receive Date: 20100629
  Receipt Date: 20070130
  Transmission Date: 20101027
  Serious: Yes (Other)
  Sender: FDA-Public Use
  Company Number: US-PFIZER INC-2006150992

PATIENT
  Sex: Female
  Weight: 105 kg

DRUGS (1)
  1. SUTENT [Suspect]
     Indication: RENAL CELL CARCINOMA
     Dates: start: 20060918

REACTIONS (3)
  - DISEASE PROGRESSION [None]
  - METASTASES TO SKIN [None]
  - RENAL CELL CARCINOMA [None]
